FAERS Safety Report 16994893 (Version 1)
Quarter: 2019Q4

REPORT INFORMATION
  Report Type: Spontaneous
  Country: US (occurrence: US)
  Receive Date: 20191105
  Receipt Date: 20191105
  Transmission Date: 20200122
  Serious: No
  Sender: FDA-Public Use
  Company Number: US-PFIZER INC-2019474217

PATIENT
  Age: 69 Year

DRUGS (1)
  1. NITROSTAT [Suspect]
     Active Substance: NITROGLYCERIN
     Indication: CHEST PAIN
     Dosage: 0.4 MG, AS NEEDED (0.4 MG UNDER THE TONGUE EVERY 5 MINUTES AS NEEDED. MAXIMUM OF 3)
     Route: 060

REACTIONS (2)
  - Drug hypersensitivity [Unknown]
  - Headache [Unknown]
